FAERS Safety Report 6469210-6 (Version None)
Quarter: 2009Q4

REPORT INFORMATION
  Report Type: 
  Country: None (occurrence: None)
  Receive Date: 20091203
  Receipt Date: 20071001
  Transmission Date: 20100525
  Serious: Yes (Other)
  Sender: FDA-Public Use
  Company Number: US-ELI_LILLY_AND_COMPANY-US200708001423

PATIENT
  Sex: Female
  Weight: 57.596 kg

DRUGS (6)
  1. FORTEO [Suspect]
     Indication: OSTEOPOROSIS
     Dosage: 20 UG, DAILY (1/D)
     Dates: start: 20070627
  2. ASPIRIN [Concomitant]
     Dosage: 81 MG, DAILY (1/D)
  3. CALCITRATE [Concomitant]
     Dosage: 600 MG, DAILY (1/D)
  4. VITAMIN D [Concomitant]
  5. CLARITIN [Concomitant]
  6. NAPROXEN [Concomitant]

REACTIONS (4)
  - ANXIETY [None]
  - DIZZINESS [None]
  - FALL [None]
  - PELVIC FRACTURE [None]
